FAERS Safety Report 10211248 (Version 1)
Quarter: 2014Q2

REPORT INFORMATION
  Report Type: Spontaneous
  Country: US (occurrence: None)
  Receive Date: 20140530
  Receipt Date: 20140530
  Transmission Date: 20141212
  Serious: Yes (Other)
  Sender: FDA-Public Use
  Company Number: None

PATIENT
  Sex: Male

DRUGS (1)
  1. TRAMADOL 50 MG [Suspect]
     Indication: PAIN IN EXTREMITY
     Dosage: 1 IN THE AM  ONCE DAILY TAKEN BY MOUTH
     Route: 048
     Dates: start: 20140324, end: 20140529

REACTIONS (6)
  - Dry mouth [None]
  - Insomnia [None]
  - Chest pain [None]
  - Pruritus [None]
  - Vision blurred [None]
  - Headache [None]
